FAERS Safety Report 8816314 (Version 1)
Quarter: 2012Q4

REPORT INFORMATION
  Report Type: 
  Country: US (occurrence: None)
  Receive Date: 20120928
  Receipt Date: 20120928
  Transmission Date: 20130627
  Serious: Yes (Hospitalization)
  Sender: FDA-Public Use
  Company Number: None

PATIENT
  Sex: Female
  Weight: 105.5 kg

DRUGS (5)
  1. CARBOPLATIN [Suspect]
  2. CYCLOPHOSPHAMIDE [Suspect]
  3. PACLITAXEL (TAXOL) [Suspect]
  4. PEGFILGRASTIM [Suspect]
  5. DOXORUBICIN HYDROCHLORIDE [Suspect]

REACTIONS (3)
  - Decreased appetite [None]
  - Hypophagia [None]
  - Blood sodium decreased [None]
